FAERS Safety Report 4789550-6 (Version None)
Quarter: 2005Q4

REPORT INFORMATION
  Report Type: 
  Country: None (occurrence: None)
  Receive Date: 20051006
  Receipt Date: 20050926
  Transmission Date: 20060501
  Serious: Yes (Other)
  Sender: FDA-Public Use
  Company Number: US-JNJFOC-20050905922

PATIENT
  Age: 22 Year
  Sex: Female
  Weight: 60.78 kg

DRUGS (9)
  1. REMICADE [Suspect]
     Route: 042
  2. REMICADE [Suspect]
     Route: 042
  3. REMICADE [Suspect]
     Indication: CROHN'S DISEASE
     Route: 042
  4. PENTASA [Concomitant]
  5. IMURAN [Concomitant]
  6. OVRAL [Concomitant]
  7. OVRAL [Concomitant]
  8. MACRODANTIN [Concomitant]
  9. WELLBUTRIN [Concomitant]

REACTIONS (1)
  - CERVICAL DYSPLASIA [None]
